FAERS Safety Report 7552639-2 (Version None)
Quarter: 2011Q2

REPORT INFORMATION
  Report Type: 
  Country: None (occurrence: None)
  Receive Date: 20110616
  Receipt Date: 20110609
  Transmission Date: 20111010
  Serious: Yes (Death, Life-Threatening, Other)
  Sender: FDA-Public Use
  Company Number: JP-CELGENEUS-087-21880-11061347

PATIENT
  Sex: Female

DRUGS (11)
  1. REVLIMID [Suspect]
     Dosage: 15 MILLIGRAM
     Route: 048
     Dates: start: 20110527, end: 20110529
  2. RABEPRAZOLE SODIUM [Concomitant]
     Dosage: 10 MILLIGRAM
     Route: 048
     Dates: start: 20110310, end: 20110531
  3. REVLIMID [Suspect]
     Dosage: 15 MILLIGRAM
     Route: 048
     Dates: start: 20110504, end: 20110517
  4. REVLIMID [Suspect]
     Dosage: 10 MILLIGRAM
     Route: 048
     Dates: start: 20110406, end: 20110426
  5. LOXONIN [Concomitant]
     Indication: MULTIPLE MYELOMA
     Dosage: 120 MILLIGRAM
     Route: 048
     Dates: start: 20110310, end: 20110531
  6. PURSENNID [Concomitant]
     Dosage: 24 MILLIGRAM
     Route: 048
     Dates: start: 20110310, end: 20110531
  7. REVLIMID [Suspect]
     Indication: MULTIPLE MYELOMA
     Dosage: 10 MILLIGRAM
     Route: 048
     Dates: start: 20110310, end: 20110330
  8. DEXAMETHASONE [Suspect]
     Dosage: 40 MILLIGRAM
     Route: 048
     Dates: start: 20110406, end: 20110511
  9. DIOVAN [Concomitant]
     Indication: HYPERTENSION
     Dosage: 160 MILLIGRAM
     Route: 048
     Dates: start: 20110310, end: 20110322
  10. DEXAMETHASONE [Suspect]
     Indication: MULTIPLE MYELOMA
     Dosage: 40 MILLIGRAM
     Route: 048
     Dates: start: 20110310, end: 20110331
  11. MAGMITT [Concomitant]
     Dosage: 1980 MILLIGRAM
     Route: 048
     Dates: start: 20110310, end: 20110531

REACTIONS (3)
  - FEBRILE NEUTROPENIA [None]
  - INTERSTITIAL LUNG DISEASE [None]
  - HERPES ZOSTER [None]
